FAERS Safety Report 4681521-3 (Version None)
Quarter: 2005Q2

REPORT INFORMATION
  Report Type: 
  Country: None (occurrence: None)
  Receive Date: 20050603
  Receipt Date: 20031209
  Transmission Date: 20051028
  Serious: Yes (Life-Threatening, Hospitalization)
  Sender: FDA-Public Use
  Company Number: PL-SANOFI-SYNTHELABO-D01200301878

PATIENT
  Sex: Male
  Weight: 72 kg

DRUGS (1)
  1. ALFUZOSIN [Suspect]
     Route: 048
     Dates: start: 20021202, end: 20030904

REACTIONS (10)
  - ACUTE MYOCARDIAL INFARCTION [None]
  - ANAEMIA [None]
  - ATRIOVENTRICULAR BLOCK SECOND DEGREE [None]
  - CONDITION AGGRAVATED [None]
  - CORONARY ARTERY OCCLUSION [None]
  - CORONARY ARTERY STENOSIS [None]
  - INFLAMMATION [None]
  - LEFT VENTRICULAR FAILURE [None]
  - OEDEMA [None]
  - RENAL FAILURE CHRONIC [None]
